FAERS Safety Report 15925019 (Version 2)
Quarter: 2019Q1

REPORT INFORMATION
  Report Type: Spontaneous
  Country: US (occurrence: US)
  Receive Date: 20190205
  Receipt Date: 20190219
  Transmission Date: 20190417
  Serious: No
  Sender: FDA-Public Use
  Company Number: US-ALLERGAN-1841423US

PATIENT
  Age: 51 Year
  Sex: Female

DRUGS (3)
  1. HEAVY DUTY ANTIBIOTIC [Concomitant]
     Indication: SINUSITIS
  2. ESTROGEN [Concomitant]
     Active Substance: ESTROGENS
     Dosage: UNK
  3. BOTOX [Suspect]
     Active Substance: ONABOTULINUMTOXINA
     Indication: HYPERTONIC BLADDER
     Dosage: 100 UNITS, SINGLE
     Route: 043
     Dates: start: 20180611, end: 20180611

REACTIONS (1)
  - Bacterial vaginosis [Unknown]
